FAERS Safety Report 20329894 (Version 1)
Quarter: 2022Q1

REPORT INFORMATION
  Report Type: Spontaneous
  Country: US (occurrence: None)
  Receive Date: 20220113
  Receipt Date: 20220113
  Transmission Date: 20220423
  Serious: No
  Sender: FDA-Public Use
  Company Number: 2021A875688

PATIENT
  Age: 21529 Day
  Sex: Female
  Weight: 74.8 kg

DRUGS (9)
  1. BUDESONIDE\FORMOTEROL\GLYCOPYRRONIUM [Suspect]
     Active Substance: BUDESONIDE\FORMOTEROL\GLYCOPYRRONIUM
     Indication: Chronic obstructive pulmonary disease
     Route: 055
     Dates: start: 20211117, end: 20211203
  2. SYMBICORT [Concomitant]
     Active Substance: BUDESONIDE\FORMOTEROL FUMARATE DIHYDRATE
     Dosage: UNKNOWN
     Route: 055
  3. OXYCODONE [Concomitant]
     Active Substance: OXYCODONE
     Indication: Back injury
     Dosage: 5.325
     Dates: start: 1991
  4. SIMVASTATIN [Concomitant]
     Active Substance: SIMVASTATIN
  5. COREG [Concomitant]
     Active Substance: CARVEDILOL
     Dosage: 6.25
     Dates: start: 2009
  6. LISINOPRIL [Concomitant]
     Active Substance: LISINOPRIL
     Dates: start: 2009
  7. LORAZEPAM [Concomitant]
     Active Substance: LORAZEPAM
  8. VITAMIN D [Concomitant]
     Active Substance: VITAMIN D NOS
     Dosage: 50,000 IU
  9. MIRTAZAPINE [Concomitant]
     Active Substance: MIRTAZAPINE

REACTIONS (9)
  - COVID-19 [Unknown]
  - Heart rate abnormal [Unknown]
  - Blood pressure increased [Unknown]
  - Dyspnoea [Unknown]
  - Anxiety [Unknown]
  - Product prescribing error [Unknown]
  - Product label confusion [Unknown]
  - Device use issue [Unknown]
  - Drug ineffective [Unknown]

NARRATIVE: CASE EVENT DATE: 20211117
